FAERS Safety Report 11888689 (Version 1)
Quarter: 2016Q1

REPORT INFORMATION
  Report Type: Spontaneous
  Country: FR (occurrence: FR)
  Receive Date: 20160105
  Receipt Date: 20160105
  Transmission Date: 20160526
  Serious: Yes (Hospitalization, Other)
  Sender: FDA-Public Use
  Company Number: FR-PFIZER INC-2015423077

PATIENT
  Age: 74 Year
  Sex: Male

DRUGS (10)
  1. LOXEN /00639802/ [Concomitant]
     Active Substance: NICARDIPINE
     Dosage: UNK
  2. ENDOXAN /00021101/ [Suspect]
     Active Substance: CYCLOPHOSPHAMIDE
     Indication: BREAST CANCER
     Dosage: UNK
     Route: 041
     Dates: start: 20151104, end: 20151104
  3. FLUOROURACILE WINTHROP [Suspect]
     Active Substance: FLUOROURACIL
     Indication: BREAST CANCER
     Dosage: UNK
     Route: 041
     Dates: start: 20151104, end: 20151104
  4. APROVEL [Concomitant]
     Active Substance: IRBESARTAN
     Dosage: UNK
  5. EPIRUBICIN HCL [Suspect]
     Active Substance: EPIRUBICIN HYDROCHLORIDE
     Indication: BREAST CANCER
     Dosage: UNK
     Route: 041
     Dates: start: 20151104, end: 20151104
  6. LASILIX /00032601/ [Concomitant]
     Active Substance: FUROSEMIDE
     Dosage: UNK
  7. SOLUPRED /00016201/ [Concomitant]
     Active Substance: PREDNISOLONE
     Dosage: UNK
  8. NEULASTA [Concomitant]
     Active Substance: PEGFILGRASTIM
     Dosage: UNK
  9. DIFFU K [Concomitant]
     Active Substance: POTASSIUM CHLORIDE
     Dosage: UNK
  10. INEXIUM /01479302/ [Concomitant]
     Active Substance: ESOMEPRAZOLE MAGNESIUM
     Dosage: UNK

REACTIONS (4)
  - Pancytopenia [Recovering/Resolving]
  - Hyperthermia [Unknown]
  - Agranulocytosis [Recovering/Resolving]
  - Enterobacter infection [Unknown]

NARRATIVE: CASE EVENT DATE: 2015
